FAERS Safety Report 9059954 (Version 2)
Quarter: 2013Q1

REPORT INFORMATION
  Report Type: Spontaneous
  Country: US (occurrence: None)
  Receive Date: 20130118
  Receipt Date: 20130221
  Transmission Date: 20140127
  Serious: Yes (Other)
  Sender: FDA-Public Use
  Company Number: IMP_06133_2013

PATIENT
  Age: 15 Year
  Sex: Female

DRUGS (1)
  1. MINOCYCLINE [Suspect]
     Indication: ACNE
     Dosage: (DF)
     Route: 048

REACTIONS (12)
  - Muscle spasms [None]
  - Neck pain [None]
  - Papilloedema [None]
  - Headache [None]
  - Pain [None]
  - Diplopia [None]
  - Nausea [None]
  - Visual acuity reduced [None]
  - Visual field defect [None]
  - Chorioretinal disorder [None]
  - Haemorrhage [None]
  - Benign intracranial hypertension [None]
